FAERS Safety Report 5656100-1 (Version None)
Quarter: 2008Q1

REPORT INFORMATION
  Report Type: 
  Country: None (occurrence: None)
  Receive Date: 20080305
  Receipt Date: 20080219
  Transmission Date: 20080703
  Serious: Yes (Other)
  Sender: FDA-Public Use
  Company Number: TRP_01073_2008

PATIENT
  Age: 26 Year
  Sex: Male
  Weight: 106.5953 kg

DRUGS (3)
  1. RIBAVIRIN [Suspect]
     Indication: HEPATITIS C
     Dosage: (1200 MG ORAL)
     Route: 048
     Dates: start: 20071204
  2. PEG-INTRON [Suspect]
     Indication: HEPATITIS C
     Dosage: (DF SUBCUTANEOUS)
     Route: 058
     Dates: start: 20071204
  3. OXYMORPHONE HYDROCHLORIDE [Concomitant]

REACTIONS (12)
  - ANOREXIA [None]
  - BACK PAIN [None]
  - CONDITION AGGRAVATED [None]
  - CONVULSION [None]
  - DREAMY STATE [None]
  - DRUG DOSE OMISSION [None]
  - FEELING ABNORMAL [None]
  - INCORRECT DOSE ADMINISTERED [None]
  - INFLUENZA LIKE ILLNESS [None]
  - NERVOUSNESS [None]
  - TREATMENT NONCOMPLIANCE [None]
  - WEIGHT DECREASED [None]
